FAERS Safety Report 8572339-X (Version None)
Quarter: 2012Q2

REPORT INFORMATION
  Report Type: 
  Country: None (occurrence: None)
  Receive Date: 20120418
  Receipt Date: 20100720
  Transmission Date: 20120825
  Serious: Yes (Other)
  Sender: FDA-Public Use
  Company Number: PHHY2010US47728

PATIENT
  Age: 53 Year
  Sex: Female

DRUGS (3)
  1. PROTONIX [Concomitant]
  2. DARVOCET [Concomitant]
  3. ESTRADERM [Suspect]
     Dosage: 0.05MG, TRANSDERMAL

REACTIONS (1)
  - BREAST CANCER [None]
